FAERS Safety Report 19474284 (Version 1)
Quarter: 2021Q2

REPORT INFORMATION
  Report Type: Spontaneous
  Country: US (occurrence: US)
  Receive Date: 20210629
  Receipt Date: 20210629
  Transmission Date: 20210717
  Serious: Yes (Hospitalization, Other)
  Sender: FDA-Public Use
  Company Number: US-PFIZER INC-2021315805

PATIENT
  Age: 53 Year
  Sex: Female

DRUGS (1)
  1. ATORVASTATIN CALCIUM. [Suspect]
     Active Substance: ATORVASTATIN CALCIUM
     Dosage: UNK
     Dates: start: 2012

REACTIONS (19)
  - Burning sensation [Not Recovered/Not Resolved]
  - Deformity [Not Recovered/Not Resolved]
  - Restless legs syndrome [Unknown]
  - Myopathy [Unknown]
  - Formication [Unknown]
  - Muscle rupture [Not Recovered/Not Resolved]
  - Screaming [Unknown]
  - Paraesthesia [Unknown]
  - Decreased appetite [Not Recovered/Not Resolved]
  - Pain in extremity [Not Recovered/Not Resolved]
  - Crying [Unknown]
  - Emotional distress [Unknown]
  - Myositis [Unknown]
  - Peripheral swelling [Unknown]
  - Vertigo positional [Unknown]
  - Insomnia [Not Recovered/Not Resolved]
  - Weight decreased [Not Recovered/Not Resolved]
  - Myalgia [Unknown]
  - Electromyogram abnormal [Unknown]

NARRATIVE: CASE EVENT DATE: 20120202
